FAERS Safety Report 7461332-6 (Version None)
Quarter: 2011Q2

REPORT INFORMATION
  Report Type: 
  Country: None (occurrence: None)
  Receive Date: 20110506
  Receipt Date: 20110429
  Transmission Date: 20111010
  Serious: No
  Sender: FDA-Public Use
  Company Number: US-BIOGENIDEC-2011BI016456

PATIENT
  Sex: Female

DRUGS (2)
  1. TYSABRI [Suspect]
     Route: 042
     Dates: start: 20080218, end: 20081128
  2. TYSABRI [Suspect]
     Indication: MULTIPLE SCLEROSIS
     Route: 042
     Dates: start: 20100330, end: 20101027

REACTIONS (5)
  - DISEASE PROGRESSION [None]
  - GAIT DISTURBANCE [None]
  - WALKING AID USER [None]
  - CENTRAL NERVOUS SYSTEM LESION [None]
  - PHYSICAL DISABILITY [None]
